FAERS Safety Report 5779455-6 (Version None)
Quarter: 2008Q2

REPORT INFORMATION
  Report Type: 
  Country: None (occurrence: None)
  Receive Date: 20080619
  Receipt Date: 20080111
  Transmission Date: 20081010
  Serious: No
  Sender: FDA-Public Use
  Company Number: US-ASTRAZENECA-2008UW00913

PATIENT
  Age: 72 Year
  Sex: Male
  Weight: 98.4 kg

DRUGS (1)
  1. ATACAND [Suspect]
     Route: 048
     Dates: start: 20071210

REACTIONS (2)
  - DYSPEPSIA [None]
  - STOMACH DISCOMFORT [None]
